FAERS Safety Report 7591759-3 (Version None)
Quarter: 2011Q3

REPORT INFORMATION
  Report Type: 
  Country: None (occurrence: None)
  Receive Date: 20110701
  Receipt Date: 20110701
  Transmission Date: 20111222
  Serious: Yes (Other)
  Sender: FDA-Public Use
  Company Number: None

PATIENT
  Sex: Female
  Weight: 56.6996 kg

DRUGS (7)
  1. SIMVASTATIN [Concomitant]
  2. METOPROLOL TARTRATE [Concomitant]
  3. VITAMIN D [Concomitant]
  4. CO Q-10 [Concomitant]
  5. PEPCID AC [Concomitant]
  6. ASPIRIN [Suspect]
     Indication: STENT PLACEMENT
     Dosage: 1 TABLET DAILY PO
     Route: 048
  7. EFFIENT [Suspect]
     Indication: CARDIAC DISORDER
     Dosage: 1 TABLET DAILY PO
     Route: 048
     Dates: start: 20110129, end: 20110630

REACTIONS (1)
  - MENORRHAGIA [None]
